FAERS Safety Report 26184762 (Version 1)
Quarter: 2025Q4

REPORT INFORMATION
  Report Type: Spontaneous
  Country: US (occurrence: US)
  Receive Date: 20251222
  Receipt Date: 20251222
  Transmission Date: 20260118
  Serious: Yes (Hospitalization)
  Sender: TEVA
  Company Number: US-TEVA-VS-3403749

PATIENT
  Age: 54 Year
  Sex: Male

DRUGS (2)
  1. DOXORUBICIN [Suspect]
     Active Substance: DOXORUBICIN
     Indication: Follicular thyroid cancer
     Dosage: AS AN EMULSION WITH ENDOTHELIALISED OIL AND EMBOZENE MICROSPHERES
     Route: 013
  2. MITOMYCIN [Suspect]
     Active Substance: MITOMYCIN
     Indication: Follicular thyroid cancer
     Dosage: AS AN EMULSION WITH ENDOTHELIALISED OIL AND EMBOZENE MICROSPHERES
     Route: 013

REACTIONS (1)
  - Myelitis transverse [Recovering/Resolving]
